FAERS Safety Report 20031998 (Version 1)
Quarter: 2021Q4

REPORT INFORMATION
  Report Type: Spontaneous
  Country: US (occurrence: None)
  Receive Date: 20211103
  Receipt Date: 20211103
  Transmission Date: 20220303
  Serious: Yes (Other)
  Sender: FDA-Public Use
  Company Number: US-FRESENIUS KABI-FK202111923

PATIENT
  Sex: Male

DRUGS (2)
  1. METHOTREXATE [Suspect]
     Active Substance: METHOTREXATE
     Indication: Acute lymphocytic leukaemia
     Dosage: AALL0932 PROTOCOL
     Route: 065
  2. BLINATUMOMAB [Suspect]
     Active Substance: BLINATUMOMAB
     Indication: Acute lymphocytic leukaemia
     Dosage: AALL1331 PROTOCOL
     Route: 065

REACTIONS (6)
  - Neuropathy peripheral [Unknown]
  - Seizure [Recovering/Resolving]
  - Leukoencephalopathy [Unknown]
  - Gait disturbance [Unknown]
  - Mental status changes [Unknown]
  - Toxicity to various agents [Unknown]
